FAERS Safety Report 9318377 (Version 2)
Quarter: 2013Q2

REPORT INFORMATION
  Report Type: Spontaneous
  Country: IT (occurrence: None)
  Receive Date: 20130523
  Receipt Date: 20130530
  Transmission Date: 20140414
  Serious: Yes (Other)
  Sender: FDA-Public Use
  Company Number: AUR-APL-2013-04234

PATIENT
  Age: 60 Year
  Sex: Female

DRUGS (1)
  1. LEVOFLOXACIN [Suspect]
     Indication: PRODUCT USED FOR UNKNOWN INDICATION
     Route: 048
     Dates: start: 20130315, end: 20130320

REACTIONS (8)
  - Arthralgia [None]
  - Erythema [None]
  - Lip oedema [None]
  - Paraesthesia [None]
  - Skin lesion [None]
  - Arthralgia [None]
  - Arthralgia [None]
  - Arthralgia [None]
